FAERS Safety Report 21911644 (Version 2)
Quarter: 2023Q1

REPORT INFORMATION
  Report Type: Report from Study
  Country: US (occurrence: US)
  Receive Date: 20230125
  Receipt Date: 20230227
  Transmission Date: 20230417
  Serious: Yes (Other)
  Sender: FDA-Public Use
  Company Number: US-GILEAD-2022-0603454

PATIENT
  Sex: Female

DRUGS (4)
  1. AMBRISENTAN [Suspect]
     Active Substance: AMBRISENTAN
     Indication: Pulmonary hypertension
     Dosage: 10 MG, QD
     Route: 065
     Dates: start: 20220527
  2. AMBRISENTAN [Suspect]
     Active Substance: AMBRISENTAN
     Indication: HIV infection
     Dosage: 10 MG, QD
     Route: 065
     Dates: start: 20220527
  3. AMBRISENTAN [Suspect]
     Active Substance: AMBRISENTAN
     Dosage: 10 MG, QD
     Route: 065
     Dates: start: 20220527
  4. TYVASO [Concomitant]
     Active Substance: TREPROSTINIL

REACTIONS (5)
  - Rheumatoid arthritis [Recovered/Resolved]
  - Hypersensitivity [Not Recovered/Not Resolved]
  - Arthritis [Not Recovered/Not Resolved]
  - Insomnia [Unknown]
  - Product dose omission issue [Unknown]
